FAERS Safety Report 8395534-1 (Version None)
Quarter: 2012Q2

REPORT INFORMATION
  Report Type: 
  Country: None (occurrence: None)
  Receive Date: 20120530
  Receipt Date: 20110620
  Transmission Date: 20120825
  Serious: No
  Sender: FDA-Public Use
  Company Number: US-GLAXOSMITHKLINE-A0932046A

PATIENT
  Age: 81 Year
  Sex: Female

DRUGS (5)
  1. PROAIR HFA [Concomitant]
  2. CALCIUM WITH VITAMIN D [Concomitant]
  3. ASPIRIN [Concomitant]
  4. VENTOLIN [Suspect]
     Indication: ASTHMA
     Route: 055
     Dates: start: 20110618, end: 20110619
  5. GABAPENTIN [Concomitant]

REACTIONS (4)
  - DIZZINESS [None]
  - CHEST DISCOMFORT [None]
  - DYSPNOEA [None]
  - PALPITATIONS [None]
